FAERS Safety Report 24706211 (Version 1)
Quarter: 2024Q4

REPORT INFORMATION
  Report Type: Report from Study
  Country: US (occurrence: US)
  Receive Date: 20241206
  Receipt Date: 20241206
  Transmission Date: 20250114
  Serious: Yes (Hospitalization, Other)
  Sender: ABBVIE
  Company Number: US-ABBVIE-5893216

PATIENT
  Age: 23 Year
  Sex: Male

DRUGS (2)
  1. RINVOQ [Suspect]
     Active Substance: UPADACITINIB
     Indication: Colitis ulcerative
     Dosage: STRENGTH 45MG?LAST ADMIN DATE 2024?FOR 8 WEEKS
     Route: 048
     Dates: start: 202408
  2. RINVOQ [Suspect]
     Active Substance: UPADACITINIB
     Indication: Colitis ulcerative
     Dosage: STRENGTH 30MG?FIRST ADMIN DATE 2024
     Route: 048
     Dates: end: 202411

REACTIONS (5)
  - Colostomy [Unknown]
  - Drug ineffective [Unknown]
  - Haematochezia [Unknown]
  - Malnutrition [Unknown]
  - Weight decreased [Unknown]

NARRATIVE: CASE EVENT DATE: 20240101
